FAERS Safety Report 9716834 (Version 2)
Quarter: 2013Q4

REPORT INFORMATION
  Report Type: Spontaneous
  Country: RU (occurrence: RU)
  Receive Date: 20131127
  Receipt Date: 20131203
  Transmission Date: 20140711
  Serious: Yes (Hospitalization)
  Sender: FDA-Public Use
  Company Number: RU-B.I. PHARMACEUTICALS,INC./RIDGEFIELD-2013-BI-38837RZ

PATIENT
  Age: 74 Year
  Sex: Female

DRUGS (1)
  1. PRADAXA [Suspect]
     Indication: THROMBOSIS PROPHYLAXIS
     Dosage: 220 MG
     Route: 048
     Dates: start: 20131111, end: 20131113

REACTIONS (5)
  - Thrombin time prolonged [Recovered/Resolved]
  - Prothrombin level decreased [Recovered/Resolved]
  - International normalised ratio increased [Recovered/Resolved]
  - Blood fibrinogen increased [Recovered/Resolved]
  - Activated partial thromboplastin time prolonged [Recovered/Resolved]
